FAERS Safety Report 21924684 (Version 2)
Quarter: 2023Q1

REPORT INFORMATION
  Report Type: Spontaneous
  Country: BY (occurrence: BY)
  Receive Date: 20230130
  Receipt Date: 20230321
  Transmission Date: 20230417
  Serious: Yes (Other)
  Sender: FDA-Public Use
  Company Number: BY-BEH-2023154356

PATIENT
  Age: 4 Year
  Sex: Male

DRUGS (13)
  1. ANTIHEMOPHILIC FACTOR HUMAN [Suspect]
     Active Substance: ANTIHEMOPHILIC FACTOR HUMAN
     Indication: Factor VIII deficiency
     Dosage: 25-30 IU/KG QW
     Route: 065
  2. ANTIHEMOPHILIC FACTOR HUMAN [Suspect]
     Active Substance: ANTIHEMOPHILIC FACTOR HUMAN
     Indication: Prophylaxis
  3. SIMOCTOCOG ALFA [Concomitant]
     Indication: Factor VIII deficiency
     Dosage: 38 INTERNATIONAL UNIT/KILOGRAM, QW
     Route: 065
  4. SIMOCTOCOG ALFA [Concomitant]
     Indication: Prophylaxis
  5. ANTIHEMOPHILIC FACTOR HUMAN [Suspect]
     Active Substance: ANTIHEMOPHILIC FACTOR HUMAN
     Indication: Factor VIII deficiency
     Dosage: 0.01 TO 400 IU IN A VOLUME OF 20ML PER 15 MIN WITH 1 DAY INTERVAL
     Route: 042
  6. ANTIHEMOPHILIC FACTOR HUMAN [Suspect]
     Active Substance: ANTIHEMOPHILIC FACTOR HUMAN
     Dosage: 500 INTERNATIONAL UNIT, QW
     Route: 042
  7. ANTIHEMOPHILIC FACTOR HUMAN [Suspect]
     Active Substance: ANTIHEMOPHILIC FACTOR HUMAN
     Dosage: 500 INTERNATIONAL UNIT AFTER 120 HOURS
     Route: 042
  8. ANTIHEMOPHILIC FACTOR HUMAN [Suspect]
     Active Substance: ANTIHEMOPHILIC FACTOR HUMAN
     Dosage: 500 INTERNATIONAL UNIT AFTER 72 HOURS
     Route: 042
  9. ANTIHEMOPHILIC FACTOR HUMAN [Suspect]
     Active Substance: ANTIHEMOPHILIC FACTOR HUMAN
     Dosage: 1000 INTERNATIONAL UNIT EVERY 72 HOURS
     Route: 042
  10. CLEMASTINE [Concomitant]
     Active Substance: CLEMASTINE
     Indication: Premedication
     Dosage: 0.25 MICROGRAM/KILOGRAM
     Route: 065
  11. CLEMASTINE [Concomitant]
     Active Substance: CLEMASTINE
     Dosage: 0.35 MILLILITER
     Route: 042
  12. PREDNISOLONE [Concomitant]
     Active Substance: PREDNISOLONE
     Indication: Premedication
     Dosage: 1 MILLIGRAM/KILOGRAM
     Route: 065
  13. PREDNISOLONE [Concomitant]
     Active Substance: PREDNISOLONE
     Dosage: 15 MILLIGRAM
     Route: 065

REACTIONS (8)
  - Anaphylactic reaction [Recovered/Resolved]
  - Dyspnoea [Recovered/Resolved]
  - Anaphylactic reaction [Recovered/Resolved]
  - Stridor [Recovered/Resolved]
  - Anaphylactic reaction [Recovered/Resolved]
  - Erythema [Recovered/Resolved]
  - Cough [Recovered/Resolved]
  - Dyspnoea [Recovered/Resolved]
